FAERS Safety Report 19620240 (Version 1)
Quarter: 2021Q3

REPORT INFORMATION
  Report Type: Spontaneous
  Country: US (occurrence: US)
  Receive Date: 20210728
  Receipt Date: 20210728
  Transmission Date: 20211014
  Serious: No
  Sender: FDA-Public Use
  Company Number: US-ROCHE-2744201

PATIENT
  Sex: Female

DRUGS (1)
  1. XELODA [Suspect]
     Active Substance: CAPECITABINE
     Indication: BREAST CANCER FEMALE
     Dosage: EVERY 12 HOURS FOR 7 DAYS ON, THEN 7 DAYS OFF, AND THEN REPEAT CYCLE
     Route: 048
     Dates: start: 20201203

REACTIONS (2)
  - Hypoaesthesia oral [Unknown]
  - Hypoaesthesia [Unknown]
